FAERS Safety Report 5804588-5 (Version None)
Quarter: 2008Q3

REPORT INFORMATION
  Report Type: 
  Country: None (occurrence: None)
  Receive Date: 20080707
  Receipt Date: 20080707
  Transmission Date: 20090109
  Serious: Yes (Hospitalization)
  Sender: FDA-Public Use
  Company Number: None

PATIENT
  Age: 54 Year

DRUGS (1)
  1. NAPROXEN [Suspect]
     Dosage: 500 MG TID PO
     Route: 048
     Dates: start: 20070917, end: 20080618

REACTIONS (3)
  - FATIGUE [None]
  - FLANK PAIN [None]
  - GOITRE [None]
